FAERS Safety Report 9322987 (Version 3)
Quarter: 2014Q1

REPORT INFORMATION
  Report Type: Spontaneous
  Country: US (occurrence: US)
  Receive Date: 20130603
  Receipt Date: 20140214
  Transmission Date: 20141002
  Serious: Yes (Hospitalization)
  Sender: FDA-Public Use
  Company Number: US-B.I. PHARMACEUTICALS,INC./RIDGEFIELD-2013-BI-14857BP

PATIENT
  Age: 59 Year
  Sex: Male
  Weight: 115.67 kg

DRUGS (15)
  1. PRADAXA [Suspect]
     Indication: ANTICOAGULANT THERAPY
     Dosage: 300 MG
     Dates: start: 20111208, end: 20111219
  2. PRADAXA [Suspect]
     Indication: DEEP VEIN THROMBOSIS
  3. PRADAXA [Suspect]
     Indication: PULMONARY EMBOLISM
  4. SYNTHROID [Concomitant]
     Dosage: 125 MCG
     Route: 048
  5. PLAVIX [Concomitant]
     Dosage: 75 MG
     Route: 048
  6. PERCOCET [Concomitant]
     Route: 048
  7. XANAX [Concomitant]
     Indication: ANXIETY
     Route: 048
  8. LIPITOR [Concomitant]
     Dosage: 40 MG
     Route: 048
  9. AVODART [Concomitant]
     Dosage: 0.5 MG
     Route: 048
  10. GLIMEPIRIDE [Concomitant]
     Dosage: 4 MG
     Route: 048
  11. LANTUS [Concomitant]
     Dosage: 15 U
     Route: 058
  12. METFORMIN [Concomitant]
     Dosage: 500 MG
     Route: 048
  13. REMERON [Concomitant]
     Dosage: 45 MG
     Route: 048
  14. ACIPHEX [Concomitant]
     Dosage: 20 MG
     Route: 048
  15. ASPIRIN [Concomitant]
     Dosage: 81 MG
     Route: 048

REACTIONS (2)
  - Gastrointestinal haemorrhage [Unknown]
  - Haemorrhagic anaemia [Unknown]
